FAERS Safety Report 15929258 (Version 2)
Quarter: 2019Q1

REPORT INFORMATION
  Report Type: Report from Study
  Country: DE (occurrence: DE)
  Receive Date: 20190206
  Receipt Date: 20190220
  Transmission Date: 20190417
  Serious: Yes (Hospitalization)
  Sender: FDA-Public Use
  Company Number: DE-PFIZER INC-2019054439

PATIENT
  Age: 65 Year
  Sex: Female
  Weight: 70.4 kg

DRUGS (9)
  1. NOVALGIN (METAMIZOLE SODIUM) [Concomitant]
     Active Substance: METAMIZOLE SODIUM
     Indication: CHEST PAIN
     Dosage: UNK
     Route: 048
  2. KORODIN [CAMPHOR;CONVALLARIA MAJALIS TINCTURE;CRATAEGUS LAEVIGATA EXTR [Concomitant]
     Indication: DIZZINESS
  3. KORODIN [CAMPHOR;CONVALLARIA MAJALIS TINCTURE;CRATAEGUS LAEVIGATA EXTR [Concomitant]
     Indication: CIRCULATORY COLLAPSE
     Dosage: UNK
     Route: 048
     Dates: start: 20180306
  4. PALBOCICLIB [Suspect]
     Active Substance: PALBOCICLIB
     Indication: BREAST CANCER
     Dosage: 125 MG, DAILY
     Route: 048
     Dates: start: 20180205
  5. BECLOMETASON [Concomitant]
     Active Substance: BECLOMETHASONE DIPROPIONATE
     Indication: RHINORRHOEA
     Dosage: UNK
     Route: 045
     Dates: start: 20181013
  6. EXEMESTANE. [Suspect]
     Active Substance: EXEMESTANE
     Indication: BREAST CANCER
     Dosage: UNK
     Route: 048
     Dates: start: 20180205
  7. CYANOCOBALAMIN. [Suspect]
     Active Substance: CYANOCOBALAMIN
     Indication: PROPHYLAXIS
     Dosage: UNK
     Route: 058
     Dates: start: 20180322, end: 20180322
  8. TARGIN [Concomitant]
     Active Substance: NALOXONE HYDROCHLORIDE\OXYCODONE HYDROCHLORIDE
     Indication: CHEST PAIN
     Dosage: UNK
     Route: 048
  9. VITAMIN D [Concomitant]
     Active Substance: CHOLECALCIFEROL
     Indication: PROPHYLAXIS
     Dosage: UNK
     Route: 048
     Dates: end: 20181015

REACTIONS (1)
  - Stenosis [Recovered/Resolved]

NARRATIVE: CASE EVENT DATE: 20190125
